FAERS Safety Report 7342047-1 (Version None)
Quarter: 2011Q1

REPORT INFORMATION
  Report Type: 
  Country: None (occurrence: None)
  Receive Date: 20110309
  Receipt Date: 20110228
  Transmission Date: 20110831
  Serious: Yes (Hospitalization)
  Sender: FDA-Public Use
  Company Number: US-ASTRAZENECA-2011SE10968

PATIENT
  Age: 31 Year
  Sex: Male

DRUGS (1)
  1. SEROQUEL [Suspect]
     Indication: SCHIZOPHRENIA
     Dosage: 200 TO 400 MG IN THE MORNING AND 600-800 MG AT NIGHT
     Route: 048
     Dates: start: 20090101

REACTIONS (3)
  - ANXIETY [None]
  - SCHIZOPHRENIA [None]
  - DRUG INEFFECTIVE [None]
